FAERS Safety Report 6155839-1 (Version None)
Quarter: 2009Q2

REPORT INFORMATION
  Report Type: 
  Country: None (occurrence: None)
  Receive Date: 20090415
  Receipt Date: 20090409
  Transmission Date: 20091009
  Serious: Yes (Life-Threatening, Hospitalization)
  Sender: FDA-Public Use
  Company Number: GB-JNJFOC-20090401698

PATIENT
  Age: 24 Year
  Sex: Male

DRUGS (4)
  1. REMICADE [Suspect]
     Route: 042
  2. REMICADE [Suspect]
     Indication: CROHN'S DISEASE
     Dosage: HAD 3 DOSES
     Route: 042
  3. METHOTREXATE [Suspect]
     Indication: CROHN'S DISEASE
  4. PREDNISOLONE [Suspect]
     Indication: CROHN'S DISEASE

REACTIONS (1)
  - MENINGITIS LISTERIA [None]
